FAERS Safety Report 26177761 (Version 1)
Quarter: 2025Q4

REPORT INFORMATION
  Report Type: Spontaneous
  Country: BA (occurrence: BA)
  Receive Date: 20251219
  Receipt Date: 20251219
  Transmission Date: 20260118
  Serious: Yes (Other)
  Sender: MERCK SHARP & DOHME LLC
  Company Number: BA-009507513-2362163

PATIENT
  Age: 41 Year
  Sex: Female

DRUGS (5)
  1. KEYTRUDA [Suspect]
     Active Substance: PEMBROLIZUMAB
     Indication: Triple negative breast cancer
     Dosage: TOTAL 8 CYCLES (NEOADJUVANT)
     Dates: start: 20240702, end: 202412
  2. KEYTRUDA [Suspect]
     Active Substance: PEMBROLIZUMAB
     Indication: Triple negative breast cancer
     Dosage: TOTAL 9 CYCLES (ADJUVANT)
     Dates: start: 202503, end: 202509
  3. DOCETAXEL [Suspect]
     Active Substance: DOCETAXEL
     Indication: Triple negative breast cancer
     Dosage: 4 CYCLES  (LAST ADMIN DATE: 2024)
     Dates: start: 20240702
  4. CYCLOPHOSPHAMIDE [Suspect]
     Active Substance: CYCLOPHOSPHAMIDE
     Indication: Triple negative breast cancer
     Dosage: 4 CYCLES TC, THEN 4 CYCLES AC
     Dates: start: 20240702, end: 202412
  5. DOXORUBICIN [Suspect]
     Active Substance: DOXORUBICIN
     Indication: Triple negative breast cancer
     Dosage: 4 CYCLES
     Dates: start: 2024, end: 202412

REACTIONS (3)
  - Hypothyroidism [Unknown]
  - Neutropenia [Unknown]
  - Anaemia [Unknown]
